FAERS Safety Report 8835779 (Version 1)
Quarter: 2012Q4

REPORT INFORMATION
  Report Type: Report from Study
  Country: JP (occurrence: JP)
  Receive Date: 20121011
  Receipt Date: 20121011
  Transmission Date: 20130627
  Serious: Yes (Other)
  Sender: FDA-Public Use
  Company Number: JP-009507513-1210JPN000001

PATIENT
  Age: 65 Year
  Sex: Female
  Weight: 41 kg

DRUGS (6)
  1. PEGINTRON [Suspect]
     Indication: HEPATITIS C
     Dosage: 1.5 Microgram per kilogram, qw
     Route: 058
     Dates: start: 20120719
  2. REBETOL [Suspect]
     Indication: HEPATITIS C
     Dosage: 400 mg, qd
     Route: 048
     Dates: start: 20120719
  3. TELAVIC [Suspect]
     Indication: HEPATITIS C
     Dosage: 1500 mg, qd
     Route: 048
     Dates: start: 20120719, end: 20120721
  4. LOXONIN [Concomitant]
     Indication: PYREXIA
     Dosage: 60 mg, qd, as needed
     Route: 048
     Dates: start: 20120719
  5. MUCOSTA [Concomitant]
     Dosage: 100 mg, qd
     Route: 048
     Dates: start: 20120719
  6. OMEPRAL [Concomitant]
     Indication: PROPHYLAXIS
     Dosage: 20 mg, qd
     Route: 048
     Dates: start: 20120725

REACTIONS (1)
  - Rash [Recovering/Resolving]
